FAERS Safety Report 17280121 (Version 4)
Quarter: 2020Q2

REPORT INFORMATION
  Report Type: Spontaneous
  Country: NL (occurrence: NL)
  Receive Date: 20200117
  Receipt Date: 20200601
  Transmission Date: 20200713
  Serious: Yes (Other)
  Sender: FDA-Public Use
  Company Number: NL-AUROBINDO-AUR-APL-2020-002067

PATIENT
  Age: 69 Year
  Sex: Female
  Weight: 44 kg

DRUGS (20)
  1. DUODOPA [Suspect]
     Active Substance: CARBIDOPA\LEVODOPA
     Dosage: UNK,MD: 3.0, CD: 4.1, ED: 1.2, CND: 1.1, END: 1.0
     Route: 050
  2. MOVICOLON [Concomitant]
     Active Substance: POLYETHYLENE GLYCOL 3350\POTASSIUM CHLORIDE\SODIUM BICARBONATE\SODIUM CHLORIDE
     Indication: ABNORMAL FAECES
     Dosage: 1.5 SACHET
     Route: 065
  3. PROSHIELD [Concomitant]
     Indication: STOMA SITE REACTION
     Dosage: UNK
     Route: 065
  4. DUODOPA [Suspect]
     Active Substance: CARBIDOPA\LEVODOPA
     Indication: PARKINSON^S DISEASE
     Dosage: UNK,MD 3.4 CDD 4.6 EDD1.2 CDN 2.1 EDN 1.2
     Route: 050
  5. DUODOPA [Suspect]
     Active Substance: CARBIDOPA\LEVODOPA
     Dosage: UNK,MD: 3.5, CD: 4.6, ED: 1.2, CND: 2.1, END: 1.2; 24 HOUR ADMINISTRATION
     Route: 050
  6. DUODOPA [Suspect]
     Active Substance: CARBIDOPA\LEVODOPA
     Dosage: UNK,MORNING DOSE: 3.0 CONTINUOUS DOSE: 3.8 EXTRA DOSE: 1.2 NIGHT DOSE: 0.9
     Route: 050
     Dates: start: 20171030
  7. DUODOPA [Suspect]
     Active Substance: CARBIDOPA\LEVODOPA
     Dosage: UNK, MD: 3.5, CD: 4.7, ED: 1.0, CND: 1.2
     Route: 050
  8. SILVER NITRATE. [Concomitant]
     Active Substance: SILVER NITRATE
     Indication: STOMA SITE REACTION
     Dosage: UNK
     Route: 065
  9. DIMETICONE [Concomitant]
     Active Substance: DIMETHICONE
     Indication: STOMA SITE REACTION
     Dosage: UNK
     Route: 065
  10. LORAZEPAM. [Suspect]
     Active Substance: LORAZEPAM
     Indication: INSOMNIA
     Dosage: UNK
     Route: 065
  11. DUODOPA [Suspect]
     Active Substance: CARBIDOPA\LEVODOPA
     Dosage: UNK,MD: 3.4, CD: 4.2, ED: 1.2
     Route: 050
  12. CLOZAPINE. [Concomitant]
     Active Substance: CLOZAPINE
     Indication: PRODUCT USED FOR UNKNOWN INDICATION
     Dosage: 4 DOSAGE FORM, ONCE A DAY
     Route: 065
     Dates: start: 201808
  13. ZINC. [Concomitant]
     Active Substance: ZINC
     Indication: PRODUCT USED FOR UNKNOWN INDICATION
     Dosage: UNK
     Route: 065
  14. SILVER NITRATE. [Concomitant]
     Active Substance: SILVER NITRATE
     Indication: FIBROMA
  15. TERRA-CORTRIL [Suspect]
     Active Substance: HYDROCORTISONE ACETATE\OXYTETRACYCLINE HYDROCHLORIDE
     Indication: PRODUCT USED FOR UNKNOWN INDICATION
     Dosage: UNK
     Route: 065
  16. MOVICOLON [Concomitant]
     Active Substance: POLYETHYLENE GLYCOL 3350\POTASSIUM CHLORIDE\SODIUM BICARBONATE\SODIUM CHLORIDE
     Indication: ABNORMAL FAECES
     Dosage: 3 DOSAGE FORM, ONCE A DAY
     Route: 065
  17. DUODOPA [Suspect]
     Active Substance: CARBIDOPA\LEVODOPA
     Dosage: UNK,MD: 3.2, CD: 4.1, ED: 1.2, CND: 1.5, END: 1.0
     Route: 050
  18. DUODOPA [Suspect]
     Active Substance: CARBIDOPA\LEVODOPA
     Dosage: CDD INCREASED TO 4.8
     Route: 050
  19. MACROGOL [Concomitant]
     Active Substance: POLYETHYLENE GLYCOLS
     Indication: ABNORMAL FAECES
     Dosage: 2 SACHET
     Route: 065
  20. TEMAZEPAM. [Concomitant]
     Active Substance: TEMAZEPAM
     Indication: PRODUCT USED FOR UNKNOWN INDICATION
     Dosage: UNK
     Route: 065

REACTIONS (65)
  - Hyperkinesia [Not Recovered/Not Resolved]
  - Fatigue [Not Recovered/Not Resolved]
  - Tremor [Not Recovered/Not Resolved]
  - Decreased interest [Not Recovered/Not Resolved]
  - Stoma site discharge [Recovered/Resolved]
  - Nocturia [Not Recovered/Not Resolved]
  - Dyspnoea [Recovered/Resolved]
  - Wrong technique in product usage process [Recovered/Resolved]
  - Device dislocation [Not Recovered/Not Resolved]
  - Hallucination [Recovered/Resolved]
  - Dysphagia [Not Recovered/Not Resolved]
  - Therapeutic product effect delayed [Not Recovered/Not Resolved]
  - Stoma site pain [Unknown]
  - Memory impairment [Not Recovered/Not Resolved]
  - Speech disorder [Not Recovered/Not Resolved]
  - Muscle rigidity [Not Recovered/Not Resolved]
  - Mood swings [Not Recovered/Not Resolved]
  - Poor quality sleep [Recovering/Resolving]
  - Cognitive disorder [Not Recovered/Not Resolved]
  - Dyskinesia [Not Recovered/Not Resolved]
  - Dystonia [Not Recovered/Not Resolved]
  - Pollakiuria [Unknown]
  - General physical health deterioration [Unknown]
  - Stoma site hypersensitivity [Recovered/Resolved]
  - Device effect variable [Not Recovered/Not Resolved]
  - Stoma site discomfort [Recovered/Resolved]
  - Underdose [Not Recovered/Not Resolved]
  - Salivary hypersecretion [Not Recovered/Not Resolved]
  - Dermatitis contact [Not Recovered/Not Resolved]
  - Taste disorder [Not Recovered/Not Resolved]
  - Fibroma [Recovered/Resolved]
  - Tongue movement disturbance [Not Recovered/Not Resolved]
  - Asthenia [Not Recovered/Not Resolved]
  - Joint stiffness [Not Recovered/Not Resolved]
  - Diarrhoea [Not Recovered/Not Resolved]
  - Stoma site erythema [Not Recovered/Not Resolved]
  - Condition aggravated [Unknown]
  - Dyschezia [Recovered/Resolved]
  - Therapeutic product effect incomplete [Unknown]
  - Weight decreased [Recovered/Resolved]
  - Urinary tract infection [Not Recovered/Not Resolved]
  - On and off phenomenon [Not Recovered/Not Resolved]
  - Stoma site erythema [Recovered/Resolved]
  - Somnolence [Not Recovered/Not Resolved]
  - Confusional state [Not Recovered/Not Resolved]
  - Mental disorder [Recovered/Resolved]
  - Musculoskeletal stiffness [Not Recovered/Not Resolved]
  - Weight increased [Unknown]
  - Stoma site irritation [Not Recovered/Not Resolved]
  - Reduced facial expression [Not Recovered/Not Resolved]
  - Gait disturbance [Not Recovered/Not Resolved]
  - Gastrointestinal anastomotic leak [Not Recovered/Not Resolved]
  - Temperature intolerance [Not Recovered/Not Resolved]
  - Respiratory rate increased [Not Recovered/Not Resolved]
  - Respiratory disorder [Not Recovered/Not Resolved]
  - Hyperhidrosis [Not Recovered/Not Resolved]
  - Stoma site reaction [Not Recovered/Not Resolved]
  - Therapeutic product effect variable [Recovered/Resolved]
  - Decreased appetite [Not Recovered/Not Resolved]
  - Bradykinesia [Not Recovered/Not Resolved]
  - Asthenopia [Not Recovered/Not Resolved]
  - Fall [Unknown]
  - Sensitivity to weather change [Unknown]
  - Drug ineffective [Recovered/Resolved]
  - Depressed mood [Not Recovered/Not Resolved]

NARRATIVE: CASE EVENT DATE: 201711
